FAERS Safety Report 7444521-6 (Version None)
Quarter: 2011Q2

REPORT INFORMATION
  Report Type: 
  Country: None (occurrence: None)
  Receive Date: 20110429
  Receipt Date: 20110429
  Transmission Date: 20111010
  Serious: Yes (Hospitalization, Other)
  Sender: FDA-Public Use
  Company Number: US-ROXANE LABORATORIES, INC.-2011-DE-02339GD

PATIENT
  Age: 54 Year
  Sex: Male

DRUGS (1)
  1. PREDNISONE [Suspect]
     Indication: IMMUNOSUPPRESSANT DRUG THERAPY
     Dosage: 10 MG

REACTIONS (3)
  - ACUTE SINUSITIS [None]
  - EXOPHTHALMOS [None]
  - CUSHING'S SYNDROME [None]
